FAERS Safety Report 10189499 (Version 2)
Quarter: 2014Q2

REPORT INFORMATION
  Report Type: Spontaneous
  Country: US (occurrence: US)
  Receive Date: 20140522
  Receipt Date: 20140522
  Transmission Date: 20141212
  Serious: No
  Sender: FDA-Public Use
  Company Number: US-ASTRAZENECA-2013SE62736

PATIENT
  Age: 11 Month
  Sex: Male

DRUGS (2)
  1. PULMICORT NEBUAMP [Suspect]
     Dosage: 125ML FOR ABOUT 2 OR 3 MONTHS
     Route: 055
     Dates: start: 201306
  2. PULMICORT NEBUAMP [Suspect]
     Dosage: GENERIC
     Route: 055

REACTIONS (3)
  - Productive cough [Unknown]
  - Cough [Unknown]
  - Drug ineffective [Unknown]
